FAERS Safety Report 8107128-3 (Version None)
Quarter: 2012Q1

REPORT INFORMATION
  Report Type: 
  Country: None (occurrence: None)
  Receive Date: 20120202
  Receipt Date: 20120131
  Transmission Date: 20120608
  Serious: Yes (Other)
  Sender: FDA-Public Use
  Company Number: DE-SANOFI-AVENTIS-2011SA055421

PATIENT
  Age: 77 Year
  Sex: Female

DRUGS (1)
  1. MULTAQ [Suspect]
     Route: 048
     Dates: start: 20101214, end: 20110202

REACTIONS (8)
  - GLOMERULAR FILTRATION RATE DECREASED [None]
  - RENAL FAILURE CHRONIC [None]
  - HEPATIC ENZYME INCREASED [None]
  - GAMMA-GLUTAMYLTRANSFERASE INCREASED [None]
  - BLOOD CREATININE INCREASED [None]
  - ASPARTATE AMINOTRANSFERASE INCREASED [None]
  - ALANINE AMINOTRANSFERASE INCREASED [None]
  - BLOOD ALKALINE PHOSPHATASE INCREASED [None]
